FAERS Safety Report 24550587 (Version 1)
Quarter: 2024Q4

REPORT INFORMATION
  Report Type: Spontaneous
  Country: PL (occurrence: PL)
  Receive Date: 20241025
  Receipt Date: 20241025
  Transmission Date: 20250114
  Serious: Yes (Other)
  Sender: AMGEN
  Company Number: PL-AMGEN-POLSP2024207065

PATIENT
  Age: 64 Year
  Sex: Male

DRUGS (4)
  1. SOTORASIB [Suspect]
     Active Substance: SOTORASIB
     Indication: Product used for unknown indication
     Dosage: UNK
     Route: 065
     Dates: start: 20231026
  2. CARBOPLATIN [Concomitant]
     Active Substance: CARBOPLATIN
     Dosage: UNK, AUC 5
     Dates: start: 20230313
  3. VINORELBINE [Concomitant]
     Active Substance: VINORELBINE TARTRATE
     Dosage: 60 MILLIGRAM/SQ. METER
     Dates: start: 20230313
  4. DURVALUMAB [Concomitant]
     Active Substance: DURVALUMAB

REACTIONS (2)
  - Metastases to lymph nodes [Unknown]
  - Diarrhoea [Unknown]
